FAERS Safety Report 21105229 (Version 1)
Quarter: 2022Q3

REPORT INFORMATION
  Report Type: Spontaneous
  Country: US (occurrence: None)
  Receive Date: 20220719
  Receipt Date: 20220719
  Transmission Date: 20221027
  Serious: Yes (Disabling)
  Sender: FDA-Public Use
  Company Number: None

PATIENT
  Age: 63 Year
  Sex: Male
  Weight: 74.25 kg

DRUGS (1)
  1. MAGNESIUM CITRATE [Suspect]
     Active Substance: MAGNESIUM CITRATE
     Dosage: OTHER STRENGTH : SALINE LAXATIVE;?OTHER QUANTITY : 1 OUNCE(S);?FREQUENCY : AT BEDTIME;?
     Route: 048
     Dates: start: 20220617, end: 20220617

REACTIONS (2)
  - Nausea [None]
  - Gastrointestinal pain [None]

NARRATIVE: CASE EVENT DATE: 20220617
